FAERS Safety Report 7622019-X (Version None)
Quarter: 2011Q3

REPORT INFORMATION
  Report Type: 
  Country: None (occurrence: None)
  Receive Date: 20110720
  Receipt Date: 20101122
  Transmission Date: 20111222
  Serious: Yes (Other)
  Sender: FDA-Public Use
  Company Number: IT-BAYER-2010-000743

PATIENT
  Age: 67 Year
  Sex: Female

DRUGS (1)
  1. ULTRAVIST 150 [Suspect]
     Indication: COMPUTERISED TOMOGRAM
     Dosage: 150 ML, ONCE
     Route: 042
     Dates: start: 20101027, end: 20101027

REACTIONS (3)
  - OEDEMA MUCOSAL [None]
  - SKIN OEDEMA [None]
  - URTICARIA [None]
